FAERS Safety Report 8986379 (Version 1)
Quarter: 2012Q4

REPORT INFORMATION
  Report Type: 
  Country: US (occurrence: US)
  Receive Date: 20121227
  Receipt Date: 20121227
  Transmission Date: 20130627
  Serious: No
  Sender: FDA-Public Use
  Company Number: US-BAYER-2012-135142

PATIENT
  Age: 76 Year
  Sex: Female
  Weight: 74.83 kg

DRUGS (9)
  1. ALEVE CAPLET/TABLET,MIDOL EXTENDED RELIEF CAPLET [Suspect]
     Indication: RECTAL PAIN
     Dosage: 3 DF, QD
     Route: 048
  2. CALCIUM [Concomitant]
  3. FISH OIL [Concomitant]
  4. ZINC [Concomitant]
  5. GELATIN [Concomitant]
  6. POTASSIUM [Concomitant]
  7. VITAMIN B [Concomitant]
  8. VITAMIN A [Concomitant]
  9. VITAMIN C [Concomitant]

REACTIONS (2)
  - Incorrect drug administration duration [Not Recovered/Not Resolved]
  - Off label use [Not Recovered/Not Resolved]
